FAERS Safety Report 24669374 (Version 2)
Quarter: 2025Q2

REPORT INFORMATION
  Report Type: Report from Study
  Country: US (occurrence: US)
  Receive Date: 20241127
  Receipt Date: 20250527
  Transmission Date: 20250717
  Serious: No
  Sender: CELLTRION
  Company Number: US-CELLTRION INC.-2024US023248

PATIENT

DRUGS (6)
  1. ADALIMUMAB-AATY [Suspect]
     Active Substance: ADALIMUMAB-AATY
     Indication: Rheumatoid arthritis
     Dosage: 40 MG INJECTED SUBCUTANEOUSLY EVERY OTHER WEEK
     Route: 058
     Dates: start: 20240822
  2. ADALIMUMAB-AATY [Suspect]
     Active Substance: ADALIMUMAB-AATY
     Dosage: 40 MG INJECTED SUBCUTANEOUSLY EVERY OTHER WEEK
     Route: 058
     Dates: start: 20240905
  3. ADALIMUMAB-AATY [Suspect]
     Active Substance: ADALIMUMAB-AATY
     Dosage: 40 MG
     Route: 058
     Dates: start: 20240921
  4. ADALIMUMAB-AATY [Suspect]
     Active Substance: ADALIMUMAB-AATY
     Dosage: 40 MG, Q2WEEKS (INJECT (40MG) INTO SKIN EVERY 14 DAYS)
     Dates: start: 20240816, end: 20241020
  5. ADALIMUMAB-AATY [Suspect]
     Active Substance: ADALIMUMAB-AATY
     Dosage: 40 MG EVERY 14 DAYS
     Route: 058
     Dates: start: 20240807
  6. ADALIMUMAB-AATY [Suspect]
     Active Substance: ADALIMUMAB-AATY
     Dosage: 40 MG
     Route: 058
     Dates: start: 20241006

REACTIONS (7)
  - Thought blocking [Recovered/Resolved]
  - Headache [Recovered/Resolved]
  - Injection site bruising [Recovered/Resolved]
  - Product distribution issue [Not Recovered/Not Resolved]
  - Therapy interrupted [Not Recovered/Not Resolved]
  - Intentional dose omission [Unknown]
  - Product use issue [Unknown]

NARRATIVE: CASE EVENT DATE: 20240816
